FAERS Safety Report 10070911 (Version 1)
Quarter: 2014Q2

REPORT INFORMATION
  Report Type: Spontaneous
  Country: CA (occurrence: CA)
  Receive Date: 20140410
  Receipt Date: 20140410
  Transmission Date: 20141212
  Serious: Yes (Other)
  Sender: FDA-Public Use
  Company Number: PHHY2014CA040521

PATIENT
  Sex: 0

DRUGS (1)
  1. LEUPROLIDE ACETATE [Suspect]

REACTIONS (1)
  - Abscess sterile [Recovered/Resolved]
